FAERS Safety Report 7899209 (Version 2)
Quarter: 2012Q4

REPORT INFORMATION
  Report Type: Report from Study
  Country: US (occurrence: US)
  Receive Date: 20110414
  Receipt Date: 20121016
  Transmission Date: 20130627
  Serious: Yes (Hospitalization)
  Sender: FDA-Public Use
  Company Number: US-JNJFOC-20110401327

PATIENT
  Age: 16 None
  Sex: Female
  Weight: 54.6 kg

DRUGS (12)
  1. REMICADE [Suspect]
     Indication: INFLAMMATORY BOWEL DISEASE
     Route: 042
     Dates: start: 20091230
  2. REMICADE [Suspect]
     Indication: INFLAMMATORY BOWEL DISEASE
     Route: 042
     Dates: start: 20101203
  3. 5-ASA [Concomitant]
     Route: 048
  4. 6-MERCAPTOPURINE [Concomitant]
     Route: 065
  5. MULTIVITAMINS [Concomitant]
     Route: 065
  6. XOPENEX [Concomitant]
     Route: 065
  7. ALBUTEROL [Concomitant]
     Route: 065
  8. URSODIOL [Concomitant]
     Route: 065
  9. BECLOMETHASONE DIPROPIONATE [Concomitant]
     Route: 065
  10. IRON [Concomitant]
     Route: 065
  11. PREVACID [Concomitant]
     Route: 065
  12. LEVAQUIN [Concomitant]
     Route: 065

REACTIONS (1)
  - Asthma [Recovered/Resolved]
